FAERS Safety Report 12249160 (Version 2)
Quarter: 2016Q2

REPORT INFORMATION
  Report Type: Spontaneous
  Country: RS (occurrence: RS)
  Receive Date: 20160408
  Receipt Date: 20160415
  Transmission Date: 20160815
  Serious: Yes (Other)
  Sender: FDA-Public Use
  Company Number: RS-PFIZER INC-2016194707

PATIENT
  Age: 65 Year
  Sex: Female

DRUGS (5)
  1. TRITACE [Suspect]
     Active Substance: RAMIPRIL
     Indication: VASCULAR OCCLUSION
     Dosage: 2.5 MG, DAILY
     Route: 048
  2. ASPIRIN PROTECT [Suspect]
     Active Substance: ASPIRIN
     Indication: VASCULAR OCCLUSION
     Dosage: 100 MG, DAILY
     Route: 048
  3. VERAPAMIL [Concomitant]
     Active Substance: VERAPAMIL HYDROCHLORIDE
     Indication: ARRHYTHMIA
     Dosage: UNK
  4. NEBILET [Concomitant]
     Active Substance: NEBIVOLOL
     Indication: HYPERTENSION
     Dosage: UNK
  5. ALENDRONATE SODIUM. [Concomitant]
     Active Substance: ALENDRONATE SODIUM
     Indication: OSTEOPOROSIS
     Dosage: UNK

REACTIONS (2)
  - Malaise [Recovered/Resolved]
  - Diarrhoea haemorrhagic [Recovered/Resolved]

NARRATIVE: CASE EVENT DATE: 20141219
